FAERS Safety Report 4710281-2 (Version None)
Quarter: 2005Q3

REPORT INFORMATION
  Report Type: 
  Country: None (occurrence: None)
  Receive Date: 20050711
  Receipt Date: 20050629
  Transmission Date: 20060218
  Serious: Yes (Hospitalization)
  Sender: FDA-Public Use
  Company Number: BE-JNJFOC-20050302633

PATIENT
  Age: 69 Year
  Sex: Male

DRUGS (2)
  1. BLINDED; INFLIXIMAB, RECOMBINANT [Suspect]
     Indication: RHEUMATOID ARTHRITIS
     Route: 042
  2. SOLU-MEDROL [Suspect]
     Indication: RHEUMATOID ARTHRITIS

REACTIONS (2)
  - BRONCHITIS [None]
  - CRYPTOCOCCOSIS [None]
